FAERS Safety Report 9079533 (Version 1)
Quarter: 2013Q1

REPORT INFORMATION
  Report Type: Spontaneous
  Country: US (occurrence: US)
  Receive Date: 20130130
  Receipt Date: 20130130
  Transmission Date: 20140127
  Serious: No
  Sender: FDA-Public Use
  Company Number: US-ROCHE-1183603

PATIENT
  Sex: Female

DRUGS (1)
  1. TAMIFLU [Suspect]
     Indication: INFLUENZA
     Route: 048

REACTIONS (4)
  - Influenza [Recovering/Resolving]
  - Accidental exposure to product [Unknown]
  - Headache [Recovering/Resolving]
  - Pyrexia [Recovering/Resolving]
